FAERS Safety Report 8107699-7 (Version None)
Quarter: 2012Q1

REPORT INFORMATION
  Report Type: 
  Country: None (occurrence: None)
  Receive Date: 20120202
  Receipt Date: 20120125
  Transmission Date: 20120608
  Serious: Yes (Other)
  Sender: FDA-Public Use
  Company Number: SE-BAXTER-2012BH002630

PATIENT
  Sex: Female

DRUGS (2)
  1. EXTRANEAL [Suspect]
     Indication: RENAL FAILURE CHRONIC
     Route: 033
     Dates: start: 20120110, end: 20120124
  2. PHYSIOSOL IN PLASTIC CONTAINER [Concomitant]
     Indication: RENAL FAILURE CHRONIC
     Route: 033
     Dates: start: 20120102

REACTIONS (4)
  - SKIN EXFOLIATION [None]
  - RASH PRURITIC [None]
  - RASH PAPULAR [None]
  - RASH GENERALISED [None]
